FAERS Safety Report 7711965-4 (Version None)
Quarter: 2011Q3

REPORT INFORMATION
  Report Type: 
  Country: None (occurrence: None)
  Receive Date: 20110826
  Receipt Date: 20110815
  Transmission Date: 20111222
  Serious: Yes (Death, Other)
  Sender: FDA-Public Use
  Company Number: US-BRISTOL-MYERS SQUIBB COMPANY-16004939

PATIENT
  Age: 23 Year
  Sex: Male

DRUGS (9)
  1. CARBOPLATIN [Suspect]
  2. VINBLASTINE SULFATE [Suspect]
  3. BUSULFAN [Suspect]
     Indication: HODGKIN'S DISEASE
  4. ETOPOSIDE [Suspect]
  5. IFOSFAMIDE [Suspect]
  6. DOXORUBICIN HCL [Suspect]
  7. BLEOMYCIN SULFATE [Suspect]
  8. DACARBAZINE [Suspect]
  9. CYCLOPHOSPHAMIDE [Suspect]
     Indication: HODGKIN'S DISEASE

REACTIONS (3)
  - INTERSTITIAL LUNG DISEASE [None]
  - RIGHT VENTRICULAR FAILURE [None]
  - PNEUMONITIS [None]
